FAERS Safety Report 10434223 (Version 1)
Quarter: 2014Q3

REPORT INFORMATION
  Report Type: Spontaneous
  Country: AR (occurrence: AR)
  Receive Date: 20140905
  Receipt Date: 20140905
  Transmission Date: 20150326
  Serious: Yes (Death, Hospitalization)
  Sender: FDA-Public Use
  Company Number: AR-ACTELION-A-CH2014-104597

PATIENT
  Age: 62 Year
  Sex: Female

DRUGS (7)
  1. ESCITALOPRAM [Concomitant]
     Active Substance: ESCITALOPRAM OXALATE
     Dosage: 20 MG, UNK
  2. ATORVASTATINA [Concomitant]
     Active Substance: ATORVASTATIN
     Dosage: 10 MG, UNK
  3. PROPAFENONA [Concomitant]
     Dosage: 150 MG, UNK
  4. ZAVESCA [Suspect]
     Active Substance: MIGLUSTAT
     Indication: NIEMANN-PICK DISEASE
     Dosage: 4 , QD
     Route: 048
  5. SOMIT [Concomitant]
     Dosage: 10 MG, UNK
  6. ZAVESCA [Suspect]
     Active Substance: MIGLUSTAT
     Dosage: 400 MG, QD
     Route: 048
     Dates: start: 20121113
  7. LEBOCAR [Concomitant]
     Dosage: 250 UNK, UNK

REACTIONS (3)
  - Cheyne-Stokes respiration [Unknown]
  - Death [Fatal]
  - Dyspnoea [Unknown]
